FAERS Safety Report 14168663 (Version 1)
Quarter: 2017Q4

REPORT INFORMATION
  Report Type: Spontaneous
  Country: US (occurrence: US)
  Receive Date: 20171107
  Receipt Date: 20171107
  Transmission Date: 20180321
  Serious: No
  Sender: FDA-Public Use
  Company Number: US-SA-2017SA199526

PATIENT
  Age: 64 Year
  Sex: Female

DRUGS (2)
  1. TOUJEO [Suspect]
     Active Substance: INSULIN GLARGINE
     Dosage: 10 UNITS IN THE MORNING AND 80 UNITS IN THE ?EVENING
     Route: 051
  2. SOLOSTAR [Suspect]
     Active Substance: DEVICE

REACTIONS (1)
  - Product use issue [Unknown]
